FAERS Safety Report 7852338-3 (Version None)
Quarter: 2011Q3

REPORT INFORMATION
  Report Type: 
  Country: None (occurrence: None)
  Receive Date: 20110906
  Receipt Date: 20110719
  Transmission Date: 20111222
  Serious: No
  Sender: FDA-Public Use
  Company Number: 201105081

PATIENT
  Age: 58 Year
  Sex: Male

DRUGS (4)
  1. XIAFLEX [Suspect]
     Indication: DUPUYTREN'S CONTRACTURE
     Dosage: 0.25 CC, INTRALESIONAL
     Route: 026
     Dates: start: 20110523, end: 20110523
  2. ATENOLOL [Concomitant]
  3. PRAVASTATIN [Concomitant]
  4. CYMBALTA [Concomitant]

REACTIONS (2)
  - INCORRECT DOSE ADMINISTERED [None]
  - CONTUSION [None]
